FAERS Safety Report 7721982-6 (Version None)
Quarter: 2011Q3

REPORT INFORMATION
  Report Type: 
  Country: None (occurrence: None)
  Receive Date: 20110831
  Receipt Date: 20110822
  Transmission Date: 20111222
  Serious: Yes (Other)
  Sender: FDA-Public Use
  Company Number: US-ASTRAZENECA-2011SE22798

PATIENT
  Age: 81 Year
  Sex: Female
  Weight: 74.8 kg

DRUGS (13)
  1. CALCIUM PLUS VITAMIN D [Concomitant]
     Indication: BONE DISORDER
     Dosage: 600 MG, TWO TIMES A DAY
     Route: 048
     Dates: start: 20010101
  2. KK [Concomitant]
     Indication: MINERAL SUPPLEMENTATION
     Route: 048
     Dates: start: 19930101
  3. ASPIRIN [Concomitant]
     Indication: CARDIAC DISORDER
     Route: 048
     Dates: start: 19910101
  4. NORVASC [Concomitant]
     Indication: CARDIAC DISORDER
     Route: 048
     Dates: start: 19930101
  5. MG [Concomitant]
     Indication: MINERAL SUPPLEMENTATION
     Route: 048
     Dates: start: 20010101
  6. TOPROL-XL [Suspect]
     Indication: HYPERTENSION
     Route: 048
     Dates: start: 19930101
  7. PREDNISONE [Concomitant]
     Indication: POLYMYALGIA RHEUMATICA
     Route: 048
     Dates: start: 20010101
  8. HYDROCHLOROTHIAZIDE [Concomitant]
     Indication: CARDIAC DISORDER
     Route: 048
     Dates: start: 19910101
  9. FIBER [Concomitant]
     Indication: BOWEL MOVEMENT IRREGULARITY
     Dosage: TWO TIMES A DAY
     Route: 048
     Dates: start: 20010101
  10. PRAVACHOL [Concomitant]
     Indication: BLOOD CHOLESTEROL
     Route: 048
     Dates: start: 19910101
  11. PREVACID [Concomitant]
     Indication: GASTROOESOPHAGEAL REFLUX DISEASE
     Route: 048
     Dates: start: 20000101
  12. LEVOXYL [Concomitant]
     Indication: THYROID DISORDER
     Route: 048
     Dates: start: 19950101
  13. PLAVIX [Concomitant]
     Indication: CARDIAC DISORDER
     Route: 048
     Dates: start: 19950101

REACTIONS (6)
  - MYOCARDIAL INFARCTION [None]
  - CARDIAC DISORDER [None]
  - BACK DISORDER [None]
  - POLYMYALGIA RHEUMATICA [None]
  - GAIT DISTURBANCE [None]
  - SCIATICA [None]
